FAERS Safety Report 9793270 (Version 3)
Quarter: 2014Q1

REPORT INFORMATION
  Report Type: Report from Study
  Country: DE (occurrence: DE)
  Receive Date: 20140102
  Receipt Date: 20140303
  Transmission Date: 20141002
  Serious: Yes (Death, Hospitalization)
  Sender: FDA-Public Use
  Company Number: DE-INCYTE CORPORATION-2013IN003070

PATIENT
  Sex: Male
  Weight: 70 kg

DRUGS (2)
  1. INCB018424 [Suspect]
     Indication: MYELOFIBROSIS
     Dosage: 05 MG, BID
     Route: 048
     Dates: start: 20130528, end: 20131108
  2. METFORMIN [Concomitant]
     Dosage: UNK
     Dates: start: 20130101

REACTIONS (8)
  - Myelofibrosis [Fatal]
  - Cerebrovascular accident [Unknown]
  - Constipation [Not Recovered/Not Resolved]
  - Abdominal pain [Not Recovered/Not Resolved]
  - Aphasia [Unknown]
  - General physical health deterioration [Unknown]
  - Infection [Recovered/Resolved]
  - Pyrexia [Recovered/Resolved]
